FAERS Safety Report 5074303-4 (Version None)
Quarter: 2006Q3

REPORT INFORMATION
  Report Type: 
  Country: None (occurrence: None)
  Receive Date: 20060808
  Receipt Date: 20050708
  Transmission Date: 20061208
  Serious: No
  Sender: FDA-Public Use
  Company Number: US-AMGEN-KDL141930

PATIENT
  Age: 85 Year
  Sex: Female

DRUGS (1)
  1. PROCRIT [Suspect]
     Indication: ANAEMIA
     Dates: start: 20050101

REACTIONS (5)
  - ABASIA [None]
  - ASTHENIA [None]
  - DISTURBANCE IN ATTENTION [None]
  - FATIGUE [None]
  - HYPERSENSITIVITY [None]
